FAERS Safety Report 20475990 (Version 1)
Quarter: 2022Q1

REPORT INFORMATION
  Report Type: Spontaneous
  Country: GB (occurrence: GB)
  Receive Date: 20220215
  Receipt Date: 20220215
  Transmission Date: 20220423
  Serious: Yes (Other)
  Sender: FDA-Public Use
  Company Number: GB-DSJP-DSE-2022-104802

PATIENT
  Age: 89 Year
  Sex: Female

DRUGS (1)
  1. EDOXABAN [Suspect]
     Active Substance: EDOXABAN
     Indication: Atrial fibrillation
     Dosage: UNK

REACTIONS (4)
  - Myxofibrosarcoma [Unknown]
  - Radial nerve palsy [Unknown]
  - Contusion [Unknown]
  - Fall [Unknown]
